FAERS Safety Report 13060282 (Version 1)
Quarter: 2016Q4

REPORT INFORMATION
  Report Type: Spontaneous
  Country: MX (occurrence: MX)
  Receive Date: 20161223
  Receipt Date: 20161223
  Transmission Date: 20170207
  Serious: Yes (Other)
  Sender: FDA-Public Use
  Company Number: MX-BAUSCH-BL-2016-032046

PATIENT
  Age: 26 Year
  Sex: Male

DRUGS (4)
  1. BLEOMYCIN [Concomitant]
     Active Substance: BLEOMYCIN SULFATE
     Indication: PRODUCT USED FOR UNKNOWN INDICATION
     Dosage: THREE CYCLES
     Dates: start: 199701
  2. GANCICLOVIR. [Suspect]
     Active Substance: GANCICLOVIR
     Indication: CYTOMEGALOVIRUS CHORIORETINITIS
     Route: 065
     Dates: start: 199610
  3. VINCRISTINE [Concomitant]
     Active Substance: VINCRISTINE
     Indication: PRODUCT USED FOR UNKNOWN INDICATION
     Dosage: THREE CYCLES
     Dates: start: 199701
  4. GANCICLOVIR. [Suspect]
     Active Substance: GANCICLOVIR
     Route: 065
     Dates: start: 199702

REACTIONS (4)
  - Cytomegalovirus chorioretinitis [Unknown]
  - Lymphoedema [Unknown]
  - Condition aggravated [Unknown]
  - Pain [Unknown]
